FAERS Safety Report 7486346-1 (Version None)
Quarter: 2011Q2

REPORT INFORMATION
  Report Type: 
  Country: None (occurrence: None)
  Receive Date: 20110517
  Receipt Date: 20110509
  Transmission Date: 20111010
  Serious: Yes (Other)
  Sender: FDA-Public Use
  Company Number: PHHY2011IT40001

PATIENT
  Sex: Female

DRUGS (3)
  1. BLOPRESID [Concomitant]
     Dosage: 1 POSOLOGIC UNIT
  2. PACLITAXEL [Suspect]
     Indication: BREAST CANCER METASTATIC
     Dosage: 100 MG
     Route: 042
     Dates: start: 20110308, end: 20110308
  3. ATENOLOL [Concomitant]
     Dosage: UNK UKN, UNK
     Route: 048

REACTIONS (4)
  - PARAESTHESIA [None]
  - CYANOSIS [None]
  - DYSPNOEA [None]
  - MALAISE [None]
